FAERS Safety Report 5089686-9 (Version None)
Quarter: 2006Q3

REPORT INFORMATION
  Report Type: 
  Country: None (occurrence: None)
  Receive Date: 20060828
  Receipt Date: 20060822
  Transmission Date: 20061208
  Serious: Yes (Hospitalization)
  Sender: FDA-Public Use
  Company Number: US-JNJFOC-20060805048

PATIENT
  Sex: Male
  Weight: 131.36 kg

DRUGS (15)
  1. REMICADE [Suspect]
     Indication: CROHN'S DISEASE
     Route: 042
  2. ASACOL [Concomitant]
  3. GLUCOPHAGE [Concomitant]
  4. LIPITOR [Concomitant]
  5. PROTONIX [Concomitant]
  6. PLAVIX [Concomitant]
  7. ACTOS [Concomitant]
  8. ASPIRIN [Concomitant]
  9. HEMOCYTE [Concomitant]
  10. COMBIVENT [Concomitant]
     Dosage: 2 PUFF QID
  11. BENICAR [Concomitant]
  12. REGULAR INSULIN [Concomitant]
     Dosage: DOSE 20 UNITS IN AM, 20 UNITS IN PM
  13. NPH INSULIN [Concomitant]
     Dosage: DOSE 40 UNITS IN AM, 30 UNITS IN PM
  14. SPIRONOLACTONE/HYDROCHLOROTHIAZIDE [Concomitant]
  15. AZATHIOPRINE [Concomitant]

REACTIONS (1)
  - CYTOMEGALOVIRUS COLITIS [None]
